FAERS Safety Report 4723364-8 (Version None)
Quarter: 2005Q3

REPORT INFORMATION
  Report Type: 
  Country: None (occurrence: None)
  Receive Date: 20050725
  Receipt Date: 20050705
  Transmission Date: 20060218
  Serious: Yes (Hospitalization)
  Sender: FDA-Public Use
  Company Number: PHHO2005JP10794

PATIENT
  Age: 78 Year
  Sex: Female
  Weight: 43 kg

DRUGS (4)
  1. DIOVAN [Suspect]
     Indication: HYPERTENSION
     Dosage: 40 MG, QD
     Route: 048
     Dates: start: 20021210, end: 20040203
  2. MUCOSTA [Concomitant]
     Indication: GASTRITIS
  3. CYANOCOBALAMIN [Concomitant]
     Indication: NEURALGIA
  4. NEUROVITAN [Concomitant]
     Indication: NEURALGIA

REACTIONS (2)
  - ATRIAL FIBRILLATION [None]
  - BLOOD PRESSURE DECREASED [None]
